FAERS Safety Report 11429900 (Version 1)
Quarter: 2015Q3

REPORT INFORMATION
  Report Type: Spontaneous
  Country: US (occurrence: US)
  Receive Date: 20150828
  Receipt Date: 20150828
  Transmission Date: 20151125
  Serious: No
  Sender: FDA-Public Use
  Company Number: US-ROCHE-1163696

PATIENT
  Age: 60 Year
  Sex: Male

DRUGS (3)
  1. PEGASYS [Suspect]
     Active Substance: PEGINTERFERON ALFA-2A
     Indication: CHRONIC HEPATITIS C
     Route: 058
     Dates: start: 20121026
  2. TELAPREVIR [Suspect]
     Active Substance: TELAPREVIR
     Indication: CHRONIC HEPATITIS C
     Route: 065
     Dates: start: 20121026, end: 201212
  3. RIBASPHERE RIBAPAK [Suspect]
     Active Substance: RIBAVIRIN
     Indication: CHRONIC HEPATITIS C
     Route: 048
     Dates: start: 20121026

REACTIONS (6)
  - Dyspnoea [Unknown]
  - Sensitivity of teeth [Unknown]
  - Full blood count decreased [Unknown]
  - Pruritus [Unknown]
  - Gingival pain [Unknown]
  - Rash generalised [Unknown]

NARRATIVE: CASE EVENT DATE: 20121026
